FAERS Safety Report 7226648-7 (Version None)
Quarter: 2011Q1

REPORT INFORMATION
  Report Type: 
  Country: None (occurrence: None)
  Receive Date: 20110114
  Receipt Date: 20110106
  Transmission Date: 20110831
  Serious: Yes (Death, Other)
  Sender: FDA-Public Use
  Company Number: US-CELGENEUS-163-21880-10092000

PATIENT
  Sex: Male

DRUGS (4)
  1. REVLIMID [Suspect]
     Route: 048
     Dates: start: 20100901
  2. AMICAR [Concomitant]
     Route: 065
  3. COUMADIN [Concomitant]
     Route: 065
     Dates: end: 20100927
  4. REVLIMID [Suspect]
     Indication: MYELODYSPLASTIC SYNDROME
     Route: 048
     Dates: start: 20100818

REACTIONS (4)
  - HYPOTENSION [None]
  - DEATH [None]
  - PANCYTOPENIA [None]
  - ANAEMIA [None]
